FAERS Safety Report 9183977 (Version 2)
Quarter: 2014Q4

REPORT INFORMATION
  Report Type: Spontaneous
  Country: JP (occurrence: JP)
  Receive Date: 20130322
  Receipt Date: 20141007
  Transmission Date: 20150529
  Serious: Yes (Death, Hospitalization)
  Sender: FDA-Public Use
  Company Number: JP-ELI_LILLY_AND_COMPANY-JP201303004082

PATIENT
  Age: 54 Year
  Sex: Male

DRUGS (6)
  1. MEILAX [Concomitant]
     Active Substance: ETHYL LOFLAZEPATE
     Route: 048
  2. WYPAX [Concomitant]
     Active Substance: LORAZEPAM
     Route: 048
  3. ROHYPNOL [Concomitant]
     Active Substance: FLUNITRAZEPAM
     Route: 048
  4. LENDORMIN [Concomitant]
     Active Substance: BROTIZOLAM
     Route: 048
  5. DORAL [Concomitant]
     Active Substance: QUAZEPAM
     Route: 048
  6. ZYPREXA [Suspect]
     Active Substance: OLANZAPINE
     Indication: SCHIZOPHRENIA
     Dosage: 10 MG, QD
     Route: 048
     Dates: start: 2005

REACTIONS (3)
  - Cardiac failure [Fatal]
  - Pulmonary embolism [Fatal]
  - Pulmonary hypertension [Fatal]

NARRATIVE: CASE EVENT DATE: 20130311
